FAERS Safety Report 6254907-3 (Version None)
Quarter: 2009Q3

REPORT INFORMATION
  Report Type: 
  Country: None (occurrence: None)
  Receive Date: 20090702
  Receipt Date: 20090623
  Transmission Date: 20100115
  Serious: Yes (Hospitalization)
  Sender: FDA-Public Use
  Company Number: US-PFIZER INC-2009231115

PATIENT
  Sex: Female
  Weight: 81.6 kg

DRUGS (2)
  1. NARDIL [Suspect]
     Indication: PANIC ATTACK
     Dosage: 60 MG, 1X/DAY
  2. NARDIL [Suspect]
     Indication: ANXIETY

REACTIONS (4)
  - DIARRHOEA INFECTIOUS [None]
  - GALLBLADDER OPERATION [None]
  - HEART RATE INCREASED [None]
  - HYPERTENSION [None]
